FAERS Safety Report 7055135-4 (Version None)
Quarter: 2010Q4

REPORT INFORMATION
  Report Type: 
  Country: None (occurrence: None)
  Receive Date: 20101020
  Receipt Date: 20101020
  Transmission Date: 20110411
  Serious: Yes (Hospitalization)
  Sender: FDA-Public Use
  Company Number: None

PATIENT
  Sex: Male
  Weight: 67.4 kg

DRUGS (1)
  1. GEMCITABINE HCL [Suspect]
     Dosage: 3098 MG
     Dates: end: 20100916

REACTIONS (16)
  - ABDOMINAL PAIN [None]
  - ASCITES [None]
  - ASPARTATE AMINOTRANSFERASE INCREASED [None]
  - BLOOD ALKALINE PHOSPHATASE INCREASED [None]
  - CARBOHYDRATE ANTIGEN 19-9 INCREASED [None]
  - CARCINOEMBRYONIC ANTIGEN INCREASED [None]
  - CHOLELITHIASIS [None]
  - COMPUTERISED TOMOGRAM ABDOMEN ABNORMAL [None]
  - DECREASED APPETITE [None]
  - ENTEROCOLITIS INFECTIOUS [None]
  - GAMMA-GLUTAMYLTRANSFERASE INCREASED [None]
  - HEPATIC MASS [None]
  - PLEURAL EFFUSION [None]
  - PYREXIA [None]
  - STREPTOCOCCUS TEST POSITIVE [None]
  - ULTRASOUND ABDOMEN ABNORMAL [None]
